FAERS Safety Report 4732273-X (Version None)
Quarter: 2005Q3

REPORT INFORMATION
  Report Type: 
  Country: None (occurrence: None)
  Receive Date: 20050726
  Receipt Date: 20040122
  Transmission Date: 20060218
  Serious: Yes (Hospitalization)
  Sender: FDA-Public Use
  Company Number: 04FRA0106

PATIENT
  Sex: Male

DRUGS (6)
  1. AGGRASTAT [Suspect]
     Indication: ACUTE CORONARY SYNDROME
     Dosage: 22 ML
     Dates: start: 20031221, end: 20001222
  2. AGGRASTAT [Suspect]
     Dosage: 25000 IU/DAILY
     Dates: start: 20031222, end: 20001221
  3. BUPRENORPHINE HCL [Concomitant]
  4. CLONAZEPAM [Concomitant]
  5. FOLIC ACID [Concomitant]
  6. METHOTREXATE [Concomitant]

REACTIONS (1)
  - THROMBOCYTOPENIA [None]
